FAERS Safety Report 15571697 (Version 5)
Quarter: 2019Q4

REPORT INFORMATION
  Report Type: Spontaneous
  Country: FR (occurrence: FR)
  Receive Date: 20181031
  Receipt Date: 20191226
  Transmission Date: 20200122
  Serious: Yes (Hospitalization)
  Sender: FDA-Public Use
  Company Number: FR-TEVA-2018-FR-929234

PATIENT
  Age: 68 Year
  Sex: Male
  Weight: 96 kg

DRUGS (11)
  1. MOVICOL [Concomitant]
     Active Substance: POLYETHYLENE GLYCOL 3350\POTASSIUM CHLORIDE\SODIUM BICARBONATE\SODIUM CHLORIDE
  2. ZOPICLONE [Concomitant]
     Active Substance: ZOPICLONE
  3. PREDNISONE. [Suspect]
     Active Substance: PREDNISONE
     Indication: GENERAL PHYSICAL HEALTH DETERIORATION
     Dosage: 40 MILLIGRAM DAILY;
     Route: 048
     Dates: start: 20180220, end: 20180417
  4. HYDREA [Suspect]
     Active Substance: HYDROXYUREA
     Indication: ESSENTIAL THROMBOCYTHAEMIA
     Dates: start: 20171027, end: 20190110
  5. GLICLAZIDE [Concomitant]
     Active Substance: GLICLAZIDE
  6. CLOPIDOGREL (CHLORHYDRATE DE) [Concomitant]
     Active Substance: CLOPIDOGREL HYDROCHLORIDE
  7. ALFUZOSINE (CHLORHYDRATE D^) [Concomitant]
     Active Substance: ALFUZOSIN HYDROCHLORIDE
  8. XAGRID 0,5 MG, G?LULE [Concomitant]
     Dates: start: 201708
  9. TRAMADOL (CHLORHYDRATE DE) [Concomitant]
     Active Substance: TRAMADOL HYDROCHLORIDE
  10. PARACETAMOL [Concomitant]
     Active Substance: ACETAMINOPHEN
  11. ACIDE FOLIQUE [Concomitant]
     Active Substance: FOLIC ACID

REACTIONS (6)
  - Squamous cell carcinoma of skin [Recovered/Resolved]
  - Amyotrophy [Recovered/Resolved]
  - Capillary fragility [Recovered/Resolved]
  - Rash erythematous [Recovered/Resolved]
  - Actinic keratosis [Recovered/Resolved]
  - Skin ulcer [Recovered/Resolved]

NARRATIVE: CASE EVENT DATE: 201803
